FAERS Safety Report 9443533 (Version 5)
Quarter: 2014Q2

REPORT INFORMATION
  Report Type: Spontaneous
  Country: US (occurrence: US)
  Receive Date: 20130806
  Receipt Date: 20140509
  Transmission Date: 20141212
  Serious: No
  Sender: FDA-Public Use
  Company Number: US-PFIZER INC-2013225483

PATIENT
  Age: 85 Year
  Sex: Female

DRUGS (1)
  1. DETROL LA [Suspect]
     Indication: HYPERTONIC BLADDER
     Dosage: 40 MG, 1X/DAY
     Dates: start: 201307

REACTIONS (2)
  - Accident [Unknown]
  - Scratch [Unknown]
